FAERS Safety Report 26189970 (Version 1)
Quarter: 2025Q4

REPORT INFORMATION
  Report Type: Spontaneous
  Country: CO (occurrence: CO)
  Receive Date: 20251223
  Receipt Date: 20251223
  Transmission Date: 20260118
  Serious: Yes (Hospitalization, Disabling)
  Sender: ROCHE
  Company Number: CO-ROCHE-10000461762

PATIENT
  Age: 11 Year
  Sex: Male
  Weight: 44 kg

DRUGS (1)
  1. HEMLIBRA [Suspect]
     Active Substance: EMICIZUMAB-KXWH
     Indication: Factor VIII deficiency
     Dosage: FORMULATION:  105 MG /0.7 ML
     Route: 058
     Dates: start: 20241231

REACTIONS (5)
  - Conjunctivitis [Recovering/Resolving]
  - Visual impairment [Recovering/Resolving]
  - Gait disturbance [Recovering/Resolving]
  - Dermatitis atopic [Recovering/Resolving]
  - Photophobia [Unknown]

NARRATIVE: CASE EVENT DATE: 20251201
